FAERS Safety Report 9683195 (Version 1)
Quarter: 2013Q4

REPORT INFORMATION
  Report Type: Spontaneous
  Country: US (occurrence: None)
  Receive Date: 20131111
  Receipt Date: 20131111
  Transmission Date: 20140711
  Serious: No
  Sender: FDA-Public Use
  Company Number: None

PATIENT
  Age: 45 Year
  Sex: Male
  Weight: 90.9 kg

DRUGS (1)
  1. ANGIOMAX [Suspect]
     Dosage: 13.5 MG BOLUS AND 31.5 ML HR  INTRAVENOUS
     Route: 042
     Dates: start: 20131105

REACTIONS (1)
  - Device occlusion [None]
